FAERS Safety Report 6522262-7 (Version None)
Quarter: 2009Q4

REPORT INFORMATION
  Report Type: 
  Country: None (occurrence: None)
  Receive Date: 20091230
  Receipt Date: 20091224
  Transmission Date: 20100525
  Serious: Yes (Death)
  Sender: FDA-Public Use
  Company Number: GXKR2009QA13839

PATIENT
  Age: 39 Year
  Sex: Male

DRUGS (2)
  1. DEXAMETHASONE [Suspect]
     Indication: MULTIPLE MYELOMA
     Dosage: UNK
     Route: 065
     Dates: start: 20070101
  2. RADIOTHERAPY [Concomitant]
     Indication: MULTIPLE MYELOMA
     Dosage: UNK
     Dates: start: 20070101

REACTIONS (12)
  - CEREBRAL HAEMORRHAGE [None]
  - DYSPNOEA [None]
  - HAEMOPTYSIS [None]
  - LOSS OF CONSCIOUSNESS [None]
  - MECHANICAL VENTILATION [None]
  - MUSCULOSKELETAL STIFFNESS [None]
  - NEUROPATHY PERIPHERAL [None]
  - PUPIL FIXED [None]
  - PURPURA [None]
  - PYREXIA [None]
  - STRONGYLOIDIASIS [None]
  - TRACHEOSTOMY [None]
